FAERS Safety Report 9357389 (Version 1)
Quarter: 2013Q2

REPORT INFORMATION
  Report Type: Spontaneous
  Country: US (occurrence: None)
  Receive Date: 20130617
  Receipt Date: 20130617
  Transmission Date: 20140414
  Serious: Yes (Other)
  Sender: FDA-Public Use
  Company Number: 1306-764

PATIENT
  Age: 75 Year
  Sex: Male

DRUGS (1)
  1. EYLEA [Suspect]
     Indication: AGE-RELATED MACULAR DEGENERATION
     Dosage: 0.1 ML, INTRAVITREAL
     Dates: end: 20130528

REACTIONS (7)
  - Pain [None]
  - Vision blurred [None]
  - Hypopyon [None]
  - Photophobia [None]
  - Vitritis [None]
  - Punctate keratitis [None]
  - Intraocular pressure increased [None]
